FAERS Safety Report 24614273 (Version 1)
Quarter: 2024Q4

REPORT INFORMATION
  Report Type: Spontaneous
  Country: US (occurrence: US)
  Receive Date: 20241113
  Receipt Date: 20241113
  Transmission Date: 20250115
  Serious: Yes (Hospitalization)
  Sender: BAUSCH AND LOMB
  Company Number: US-BAUSCH-BL-2024-016624

PATIENT
  Age: 58 Year
  Sex: Female

DRUGS (1)
  1. XIFAXAN [Suspect]
     Active Substance: RIFAXIMIN
     Indication: Hepatic encephalopathy
     Dosage: DURATION 7 MONTHS
     Route: 048

REACTIONS (2)
  - Fractured coccyx [Unknown]
  - Fall [Unknown]

NARRATIVE: CASE EVENT DATE: 20241027
